FAERS Safety Report 7455777-8 (Version None)
Quarter: 2011Q2

REPORT INFORMATION
  Report Type: 
  Country: None (occurrence: None)
  Receive Date: 20110503
  Receipt Date: 20110426
  Transmission Date: 20111010
  Serious: Yes (Hospitalization, Other)
  Sender: FDA-Public Use
  Company Number: FR-PFIZER INC-2011089181

PATIENT
  Age: 84 Year
  Sex: Female

DRUGS (7)
  1. ACETAMINOPHEN [Concomitant]
     Route: 048
  2. LERCAN [Concomitant]
     Route: 048
  3. TANGANIL [Concomitant]
     Route: 048
  4. CRESTOR [Concomitant]
     Route: 048
  5. TOPALGIC [Suspect]
     Dosage: 50 MG, 3 - 4X DAILY
     Route: 048
     Dates: start: 20080101, end: 20101109
  6. CELEBREX [Suspect]
     Dosage: 200 MG, 1X/DAY
     Route: 048
     Dates: start: 20100101, end: 20101109
  7. PLAVIX [Concomitant]
     Dosage: 75 MG
     Route: 048

REACTIONS (5)
  - FALL [None]
  - ORTHOSTATIC HYPOTENSION [None]
  - CONDITION AGGRAVATED [None]
  - HYPERTENSION [None]
  - MALAISE [None]
